FAERS Safety Report 7552859-7 (Version None)
Quarter: 2011Q2

REPORT INFORMATION
  Report Type: 
  Country: None (occurrence: None)
  Receive Date: 20110616
  Receipt Date: 20110607
  Transmission Date: 20111010
  Serious: Yes (Other)
  Sender: FDA-Public Use
  Company Number: DK-PFIZER INC-2011101585

PATIENT
  Age: 66 Year
  Sex: Female

DRUGS (5)
  1. LEVOTHYROXINE SODIUM [Suspect]
     Indication: HYPOTHYROIDISM
     Dosage: UNK
     Route: 065
  2. FLUCONAZOLE [Suspect]
     Route: 065
  3. ITRACONAZOLE [Suspect]
     Dosage: UNK
     Route: 065
  4. NIZORAL [Suspect]
  5. SIMVASTATIN [Suspect]
     Dosage: UNK

REACTIONS (3)
  - ALOPECIA [None]
  - HYPOACUSIS [None]
  - EAR DISCOMFORT [None]
